FAERS Safety Report 24424887 (Version 2)
Quarter: 2024Q4

REPORT INFORMATION
  Report Type: Spontaneous
  Country: US (occurrence: US)
  Receive Date: 20241010
  Receipt Date: 20241026
  Transmission Date: 20250115
  Serious: Yes (Hospitalization, Other)
  Sender: MERCK
  Company Number: US-009507513-2410USA002655

PATIENT
  Age: 68 Year
  Sex: Female

DRUGS (5)
  1. KEYTRUDA [Suspect]
     Active Substance: PEMBROLIZUMAB
     Indication: Endometrial cancer metastatic
     Dosage: 200 MILLIGRAM, Q3W, FOR 6 CYCLES
     Route: 042
     Dates: start: 202309, end: 2023
  2. KEYTRUDA [Suspect]
     Active Substance: PEMBROLIZUMAB
     Dosage: 200 MILLIGRAM, Q3W
     Route: 042
     Dates: start: 20231002, end: 20240928
  3. LENVATINIB MESYLATE [Suspect]
     Active Substance: LENVATINIB MESYLATE
     Indication: Endometrial cancer metastatic
     Dosage: STARTING DOSE: 20 MG, QD (FLUCTUATED DOSAGE)
     Dates: end: 20240928
  4. PACLITAXEL [Suspect]
     Active Substance: PACLITAXEL
     Indication: Endometrial cancer metastatic
     Dosage: 175 MILLIGRAM/SQ. METER, FOR 6 CYCLES
     Dates: start: 202309
  5. CARBOPLATIN [Suspect]
     Active Substance: CARBOPLATIN
     Indication: Endometrial cancer metastatic
     Dosage: AREA UNDER CURVE (AUC) 6, FOR 6 CYCLES
     Dates: start: 202309

REACTIONS (3)
  - Immune-mediated enterocolitis [Recovering/Resolving]
  - Small intestinal obstruction [Recovering/Resolving]
  - Product use issue [Unknown]

NARRATIVE: CASE EVENT DATE: 20240701
